FAERS Safety Report 13755319 (Version 1)
Quarter: 2017Q3

REPORT INFORMATION
  Report Type: Spontaneous
  Country: US (occurrence: US)
  Receive Date: 20170714
  Receipt Date: 20170714
  Transmission Date: 20171127
  Serious: No
  Sender: FDA-Public Use
  Company Number: US-PFIZER INC-2017294433

PATIENT
  Age: 64 Year
  Sex: Male
  Weight: 97.6 kg

DRUGS (13)
  1. METHOTREXATE SODIUM. [Suspect]
     Active Substance: METHOTREXATE SODIUM
     Indication: RHEUMATOID ARTHRITIS
     Dosage: UNK
     Dates: start: 2015, end: 201705
  2. AMLODIPINE [Concomitant]
     Active Substance: AMLODIPINE BESYLATE
     Dosage: 5 MG, DAILY
     Route: 048
  3. BYSTOLIC [Concomitant]
     Active Substance: NEBIVOLOL HYDROCHLORIDE
     Dosage: 5 MG, DAILY
     Route: 048
  4. NEXIUM [Concomitant]
     Active Substance: ESOMEPRAZOLE MAGNESIUM
     Dosage: 40 MG, DAILY
     Route: 048
  5. LAMISIL AT [Concomitant]
     Active Substance: TERBINAFINE HYDROCHLORIDE
     Indication: PSORIATIC ARTHROPATHY
  6. OMEGA-3 ACIDS [Concomitant]
     Active Substance: OMEGA-3 FATTY ACIDS
     Dosage: UNK (350 MG-235 MG-90 MG-597 MG)
  7. LAMISIL AT [Concomitant]
     Active Substance: TERBINAFINE HYDROCHLORIDE
     Indication: RHEUMATOID ARTHRITIS
     Dosage: UNK, 2X/DAY
     Route: 061
     Dates: start: 20170516
  8. PREDNISONE. [Concomitant]
     Active Substance: PREDNISONE
     Dosage: 20 MG, DAILY (FOR 14 DAYS)
     Route: 048
  9. ANDRODERM [Concomitant]
     Active Substance: TESTOSTERONE
     Dosage: UNK UNK, DAILY (4 MG/24H, 1 PATCH)
     Route: 062
  10. ASPIR 81 [Concomitant]
     Dosage: 81 MG, DAILY
     Route: 048
  11. LIOTHYRONINE [Concomitant]
     Active Substance: LIOTHYRONINE
     Dosage: 25 UG, DAILY
     Route: 048
  12. METHOTREXATE SODIUM. [Suspect]
     Active Substance: METHOTREXATE SODIUM
     Indication: PSORIATIC ARTHROPATHY
  13. ALLOPURINOL. [Concomitant]
     Active Substance: ALLOPURINOL
     Indication: HYPERURICAEMIA
     Dosage: 300 MG, DAILY
     Route: 048

REACTIONS (7)
  - Rash erythematous [Unknown]
  - Abdominal pain [Unknown]
  - Nausea [Unknown]
  - Drug effect incomplete [Unknown]
  - Rash pruritic [Unknown]
  - Abdominal distension [Unknown]
  - Tinea pedis [Unknown]
